FAERS Safety Report 6857031-1 (Version None)
Quarter: 2010Q3

REPORT INFORMATION
  Report Type: 
  Country: None (occurrence: None)
  Receive Date: 20100719
  Receipt Date: 20100709
  Transmission Date: 20110219
  Serious: Yes (Hospitalization)
  Sender: FDA-Public Use
  Company Number: A0870750A

PATIENT
  Sex: Female
  Weight: 96 kg

DRUGS (4)
  1. SERETIDE [Suspect]
     Indication: ASTHMA
     Dates: start: 20060101
  2. MAREVAN [Concomitant]
     Dates: start: 20060101
  3. SIMVASTATIN [Concomitant]
     Dates: start: 20060101
  4. LOSARTAN POSTASSIUM [Concomitant]
     Dates: start: 20030101

REACTIONS (1)
  - FATIGUE [None]
